FAERS Safety Report 6774971-2 (Version None)
Quarter: 2010Q2

REPORT INFORMATION
  Report Type: 
  Country: None (occurrence: None)
  Receive Date: 20100617
  Receipt Date: 20100604
  Transmission Date: 20101027
  Serious: Yes (Hospitalization, Other)
  Sender: FDA-Public Use
  Company Number: US-ELI_LILLY_AND_COMPANY-US201006002885

PATIENT
  Age: 50 Year
  Sex: Female

DRUGS (3)
  1. CYMBALTA [Suspect]
     Indication: MAJOR DEPRESSION
     Dosage: 60 MG, DAILY (1/D)
     Route: 065
     Dates: start: 20050101
  2. NEXIUM [Concomitant]
     Dosage: 40 MG, DAILY (1/D)
  3. MICARDIS [Concomitant]
     Dosage: 40 MG, DAILY (1/D)
     Route: 065

REACTIONS (7)
  - ANAEMIA [None]
  - BIRT-HOGG-DUBE SYNDROME [None]
  - DIZZINESS [None]
  - HEADACHE [None]
  - LUNG NEOPLASM MALIGNANT [None]
  - NAUSEA [None]
  - VERTIGO [None]
